FAERS Safety Report 14221010 (Version 4)
Quarter: 2018Q1

REPORT INFORMATION
  Report Type: Spontaneous
  Country: US (occurrence: US)
  Receive Date: 20171124
  Receipt Date: 20180125
  Transmission Date: 20180508
  Serious: Yes (Other)
  Sender: FDA-Public Use
  Company Number: US-ASTRAZENECA-2017SF17507

PATIENT
  Age: 13367 Day
  Sex: Male
  Weight: 107.5 kg

DRUGS (38)
  1. JANUMET [Concomitant]
     Active Substance: METFORMIN HYDROCHLORIDE\SITAGLIPTIN PHOSPHATE
     Indication: DIABETES MELLITUS
     Dosage: 50-1000MG
     Route: 048
     Dates: start: 20150424
  2. ZOFRAN [Concomitant]
     Active Substance: ONDANSETRON HYDROCHLORIDE
     Route: 065
     Dates: start: 20170411
  3. CETIRIZINE HYDROCHLORIDE. [Concomitant]
     Active Substance: CETIRIZINE HYDROCHLORIDE
     Indication: BLOOD PRESSURE MEASUREMENT
     Dosage: 10.0MG UNKNOWN
     Dates: start: 20160627
  4. BYETTA [Concomitant]
     Active Substance: EXENATIDE
     Indication: DIABETES MELLITUS
     Dosage: 5.0UG UNKNOWN
     Dates: start: 20151124
  5. LISINOPRIL. [Concomitant]
     Active Substance: LISINOPRIL
     Indication: BLOOD PRESSURE MEASUREMENT
     Route: 048
     Dates: start: 20150529
  6. ADVIL [Concomitant]
     Active Substance: IBUPROFEN
     Indication: PAIN
     Dosage: 40.0MG UNKNOWN
  7. CARVEDILOL. [Concomitant]
     Active Substance: CARVEDILOL
     Indication: BLOOD PRESSURE MEASUREMENT
     Dosage: 25.0MG UNKNOWN
     Dates: start: 20160302
  8. CATAPRES [Concomitant]
     Active Substance: CLONIDINE HYDROCHLORIDE
     Route: 048
     Dates: start: 20170412
  9. MUCOMYST [Concomitant]
     Active Substance: ACETYLCYSTEINE
     Dosage: 20 SOLUTION 400 MG
     Route: 065
     Dates: start: 20170416
  10. SIMVASTATIN. [Concomitant]
     Active Substance: SIMVASTATIN
     Route: 048
  11. ASPIRIN. [Concomitant]
     Active Substance: ASPIRIN
     Indication: CEREBROVASCULAR ACCIDENT
     Route: 048
     Dates: start: 20150622
  12. LEXISCAN [Concomitant]
     Active Substance: REGADENOSON
     Route: 065
     Dates: start: 20170412
  13. APRESOLINE HYDROCHLORIDE [Concomitant]
     Active Substance: HYDRALAZINE HYDROCHLORIDE
     Route: 065
     Dates: start: 20170414
  14. NITROGLYCERIN. [Concomitant]
     Active Substance: NITROGLYCERIN
     Dosage: 50 MG IN D5W 250 ML
     Route: 042
     Dates: start: 20170418
  15. TRAMADOL HYDROCHLORIDE. [Concomitant]
     Active Substance: TRAMADOL HYDROCHLORIDE
     Indication: PAIN
     Dosage: 50.0MG UNKNOWN
     Dates: start: 20150401
  16. METOPROLOL TARTRATE. [Concomitant]
     Active Substance: METOPROLOL TARTRATE
     Indication: BLOOD PRESSURE MEASUREMENT
     Route: 048
     Dates: start: 20150604
  17. TYLENOL [Concomitant]
     Active Substance: ACETAMINOPHEN
     Indication: PAIN
     Dosage: 40.0MG UNKNOWN
  18. BRILINTA [Concomitant]
     Active Substance: TICAGRELOR
     Route: 048
     Dates: start: 20170418
  19. PNEUMOVAX 23 [Concomitant]
     Active Substance: PNEUMOCOCCAL VACCINE, POLYVALENT 23
     Indication: CEREBROVASCULAR ACCIDENT
     Dates: start: 20160202
  20. KAYEXALATE [Concomitant]
     Active Substance: SODIUM POLYSTYRENE SULFONATE
     Dosage: 15 GM/60ML SUSPENSION 30 G
     Route: 065
     Dates: start: 20170412
  21. CARDIOLITE [Concomitant]
     Active Substance: TECHNETIUM TC-99M SESTAMIBI
     Route: 065
     Dates: start: 20170414
  22. FARXIGA [Suspect]
     Active Substance: DAPAGLIFLOZIN PROPANEDIOL
     Indication: TYPE 2 DIABETES MELLITUS
     Dosage: 10.0MG UNKNOWN
     Route: 048
     Dates: start: 20150225, end: 20150914
  23. ATORVASTATIN [Concomitant]
     Active Substance: ATORVASTATIN
     Indication: BLOOD CHOLESTEROL
     Dates: start: 20150520
  24. AMLODIPINE BESYLATE. [Concomitant]
     Active Substance: AMLODIPINE BESYLATE
     Indication: BLOOD PRESSURE MEASUREMENT
     Route: 048
     Dates: start: 20150721
  25. AMLODIPINE BESYLATE. [Concomitant]
     Active Substance: AMLODIPINE BESYLATE
     Indication: BLOOD PRESSURE MEASUREMENT
     Route: 048
     Dates: start: 20170425
  26. HUMULIN NOS [Concomitant]
     Active Substance: INSULIN HUMAN
     Dosage: INJECTION SLIDING SCALE
     Route: 065
     Dates: start: 20170411
  27. MORPHIN [Concomitant]
     Active Substance: MORPHINE
     Route: 065
     Dates: start: 20170411
  28. FARXIGA [Suspect]
     Active Substance: DAPAGLIFLOZIN PROPANEDIOL
     Indication: TYPE 2 DIABETES MELLITUS
     Dosage: 10.0MG UNKNOWN
     Route: 048
     Dates: start: 20150225
  29. CHILD ASPRIN [Concomitant]
     Indication: BLOOD PRESSURE MEASUREMENT
     Dosage: 81.0MG UNKNOWN
     Dates: start: 20150520
  30. SODIUM BICARBONATE. [Concomitant]
     Active Substance: SODIUM BICARBONATE
     Indication: RENAL DISORDER
     Dosage: 850.0MG UNKNOWN
     Dates: start: 20150731
  31. PIOGLITAZONE HYDROCHLORIDE. [Concomitant]
     Active Substance: PIOGLITAZONE HYDROCHLORIDE
     Indication: DIABETES MELLITUS
     Dates: start: 20150413
  32. FUROSEMIDE. [Concomitant]
     Active Substance: FUROSEMIDE
     Indication: PERIPHERAL SWELLING
     Dosage: 20.0MG UNKNOWN
     Dates: start: 20160719
  33. METFORMIN HYDROCHLORIDE. [Concomitant]
     Active Substance: METFORMIN HYDROCHLORIDE
     Indication: DIABETES MELLITUS
     Dosage: 750.0MG UNKNOWN
     Dates: start: 20160501
  34. AMOX-CLAV [Concomitant]
     Active Substance: AMOXICILLIN\CLAVULANATE POTASSIUM
     Indication: CEREBROVASCULAR ACCIDENT
     Dates: start: 20150401
  35. VICTOZA [Concomitant]
     Active Substance: LIRAGLUTIDE
     Indication: DIABETES MELLITUS
     Dosage: 10.0MG UNKNOWN
     Dates: start: 20151111
  36. LOVENOX [Concomitant]
     Active Substance: ENOXAPARIN SODIUM
     Route: 065
     Dates: start: 20170413
  37. EPOGEN [Concomitant]
     Active Substance: ERYTHROPOIETIN
     Route: 065
     Dates: start: 20170415
  38. KETOROLAC TROMETHAMINE. [Concomitant]
     Active Substance: KETOROLAC TROMETHAMINE
     Route: 065

REACTIONS (13)
  - Nephropathy [Unknown]
  - Cardiac failure congestive [Unknown]
  - Diabetic nephropathy [Unknown]
  - Chronic kidney disease [Unknown]
  - Renal failure [Unknown]
  - Renal impairment [Unknown]
  - Acute coronary syndrome [Unknown]
  - Renal injury [Unknown]
  - Diabetic neuropathy [Unknown]
  - Coronary artery disease [Unknown]
  - Hypertensive heart disease [Unknown]
  - Acute kidney injury [Unknown]
  - End stage renal disease [Unknown]

NARRATIVE: CASE EVENT DATE: 20150601
